FAERS Safety Report 24191373 (Version 2)
Quarter: 2024Q3

REPORT INFORMATION
  Report Type: Spontaneous
  Country: FR (occurrence: FR)
  Receive Date: 20240808
  Receipt Date: 20240812
  Transmission Date: 20241017
  Serious: Yes (Other)
  Sender: ABBVIE
  Company Number: None

PATIENT
  Age: 67 Year
  Sex: Male
  Weight: 66 kg

DRUGS (6)
  1. IMBRUVICA [Suspect]
     Active Substance: IBRUTINIB
     Indication: Chronic lymphocytic leukaemia
     Dosage: 420 MG DAILY SINCE MARCH 2024
     Route: 048
     Dates: start: 202403
  2. VENETOCLAX [Suspect]
     Active Substance: VENETOCLAX
     Indication: Chronic lymphocytic leukaemia
     Dosage: 20 MG DAILY FOR 7 DAYS
     Route: 048
     Dates: start: 20240712, end: 20240719
  3. VENETOCLAX [Suspect]
     Active Substance: VENETOCLAX
     Indication: Chronic lymphocytic leukaemia
     Dosage: 50 MG DAILY FOR 7 DAYS
     Route: 048
     Dates: start: 20240720, end: 20240720
  4. BACTRIM [Suspect]
     Active Substance: SULFAMETHOXAZOLE\TRIMETHOPRIM
     Indication: Product used for unknown indication
     Dosage: SINCE MARCH 2024, ONE TABLET ON MONDAY, WEDNESDAY AND FRIDAY. WITHDRAWN ON 27-JUL-24 DUE TO AGRAN...
     Route: 048
     Dates: start: 202403, end: 20240727
  5. VALACYCLOVIR HYDROCHLORIDE [Concomitant]
     Active Substance: VALACYCLOVIR HYDROCHLORIDE
     Indication: Viral infection
     Dosage: 500 MG/DAY SINCE MARCH 2024
     Route: 048
     Dates: start: 202403
  6. ALFUZOSIN [Concomitant]
     Active Substance: ALFUZOSIN
     Indication: Benign prostatic hyperplasia
     Dosage: LONG-TERM TREATMENT

REACTIONS (1)
  - Agranulocytosis [Unknown]

NARRATIVE: CASE EVENT DATE: 20240727
